FAERS Safety Report 9931707 (Version 1)
Quarter: 2014Q1

REPORT INFORMATION
  Report Type: Spontaneous
  Country: US (occurrence: None)
  Receive Date: 20140227
  Receipt Date: 20140227
  Transmission Date: 20141002
  Serious: Yes (Other)
  Sender: FDA-Public Use
  Company Number: None

PATIENT
  Age: 56 Year
  Sex: Female
  Weight: 45.36 kg

DRUGS (7)
  1. DUEXIS [Suspect]
     Indication: HERPES ZOSTER
     Dates: start: 20140206, end: 20140208
  2. TRAMADOL [Concomitant]
  3. HYDROCODONE [Concomitant]
  4. IBUPROFEN [Concomitant]
  5. MULTI VITAMIN [Concomitant]
  6. VITAMIN C [Concomitant]
  7. CALCIUM [Concomitant]

REACTIONS (2)
  - Vision blurred [None]
  - Eye irritation [None]
